FAERS Safety Report 25078121 (Version 1)
Quarter: 2025Q1

REPORT INFORMATION
  Report Type: Other
  Country: US (occurrence: US)
  Receive Date: 20250314
  Receipt Date: 20250314
  Transmission Date: 20250408
  Serious: No
  Sender: YILING PHARMACEUTICAL LTD
  Company Number: US-YILING-2025YPSPO0008

PATIENT
  Age: 32 Year
  Sex: Male
  Weight: 89.8 kg

DRUGS (1)
  1. LAMOTRIGINE [Suspect]
     Active Substance: LAMOTRIGINE
     Indication: Epilepsy
     Dosage: 4 X 200 OR 800 DAILY. 4 TABLETS A DAY
     Route: 048
     Dates: start: 20241101, end: 20241113

REACTIONS (6)
  - Injury [Recovered/Resolved]
  - Anticonvulsant drug level decreased [Unknown]
  - Drug ineffective [Unknown]
  - Incorrect dosage administered [Unknown]
  - Therapeutic response changed [Unknown]
  - Product substitution issue [Unknown]

NARRATIVE: CASE EVENT DATE: 20241101
